FAERS Safety Report 14847501 (Version 6)
Quarter: 2022Q1

REPORT INFORMATION
  Report Type: Report from Study
  Country: CA (occurrence: CA)
  Receive Date: 20180504
  Receipt Date: 20220330
  Transmission Date: 20220423
  Serious: Yes (Death, Hospitalization)
  Sender: FDA-Public Use
  Company Number: CA-002147023-PHHY2018CA075752

PATIENT

DRUGS (2)
  1. RUXOLITINIB [Suspect]
     Active Substance: RUXOLITINIB
     Indication: Myelofibrosis
     Dosage: UNK
     Route: 048
     Dates: start: 2015
  2. RUXOLITINIB [Suspect]
     Active Substance: RUXOLITINIB
     Dosage: UNK
     Route: 048
     Dates: start: 20210930

REACTIONS (7)
  - Back disorder [Unknown]
  - Haemorrhage [Unknown]
  - Gastric haemorrhage [Unknown]
  - International normalised ratio increased [Unknown]
  - Death [Fatal]
  - Faeces discoloured [Unknown]
  - Gait disturbance [Unknown]

NARRATIVE: CASE EVENT DATE: 20220313
